FAERS Safety Report 9889948 (Version 1)
Quarter: 2014Q1

REPORT INFORMATION
  Report Type: Spontaneous
  Country: US (occurrence: US)
  Receive Date: 20140212
  Receipt Date: 20140212
  Transmission Date: 20141002
  Serious: No
  Sender: FDA-Public Use
  Company Number: US-BIOGENIDEC-2014BI013323

PATIENT
  Age: 60 Year
  Sex: Female

DRUGS (3)
  1. AVONEX [Suspect]
     Indication: MULTIPLE SCLEROSIS
     Route: 030
     Dates: start: 20100427
  2. MICARDIS [Concomitant]
  3. SPIRONOLACTONE [Concomitant]

REACTIONS (3)
  - General symptom [Unknown]
  - Chills [Unknown]
  - Adverse event [Unknown]
